FAERS Safety Report 26137979 (Version 1)
Quarter: 2025Q4

REPORT INFORMATION
  Report Type: Report from Study
  Country: PE (occurrence: PE)
  Receive Date: 20251210
  Receipt Date: 20251210
  Transmission Date: 20260117
  Serious: Yes (Death, Other)
  Sender: BIOVITRUM
  Company Number: PE-AstraZeneca-CH-01010044A

PATIENT
  Age: 6 Month
  Sex: Female

DRUGS (1)
  1. PALIVIZUMAB [Suspect]
     Active Substance: PALIVIZUMAB
     Indication: Product used for unknown indication
     Dosage: 15 MILLILITRE PER KILOGRAM, Q8W
     Route: 030
     Dates: start: 20250829

REACTIONS (1)
  - Death [Fatal]

NARRATIVE: CASE EVENT DATE: 20251202
